FAERS Safety Report 13390774 (Version 2)
Quarter: 2017Q2

REPORT INFORMATION
  Report Type: Spontaneous
  Country: GB (occurrence: GB)
  Receive Date: 20170331
  Receipt Date: 20170404
  Transmission Date: 20170830
  Serious: Yes (Other)
  Sender: FDA-Public Use
  Company Number: GB-TORRENT-00015133

PATIENT
  Age: 65 Year
  Sex: Male

DRUGS (6)
  1. DENZAPINE [Suspect]
     Active Substance: CLOZAPINE
  2. QUETIAPINE. [Suspect]
     Active Substance: QUETIAPINE
  3. CLOZARIL [Suspect]
     Active Substance: CLOZAPINE
  4. OMEPRAZOLE. [Concomitant]
     Active Substance: OMEPRAZOLE
  5. ATORVASTATIN [Concomitant]
     Active Substance: ATORVASTATIN
  6. ARIPIPRAZOLE. [Suspect]
     Active Substance: ARIPIPRAZOLE

REACTIONS (4)
  - C-reactive protein decreased [Unknown]
  - Troponin increased [Recovered/Resolved]
  - Tachycardia [Recovered/Resolved]
  - Libido increased [Recovered/Resolved]

NARRATIVE: CASE EVENT DATE: 2017
